FAERS Safety Report 7288816-8 (Version None)
Quarter: 2011Q1

REPORT INFORMATION
  Report Type: 
  Country: None (occurrence: None)
  Receive Date: 20110211
  Receipt Date: 20110207
  Transmission Date: 20110831
  Serious: Yes (Hospitalization)
  Sender: FDA-Public Use
  Company Number: FR-MERCK-1102FRA00040

PATIENT
  Age: 54 Year
  Sex: Female

DRUGS (3)
  1. FOSAMAX [Suspect]
     Indication: OSTEOPOROSIS
     Route: 048
     Dates: start: 20060601, end: 20080801
  2. FOSAMAX [Suspect]
     Route: 048
     Dates: start: 20090601
  3. FOSAMAX [Suspect]
     Route: 048
     Dates: start: 20100901, end: 20100901

REACTIONS (3)
  - JOINT SWELLING [None]
  - MUSCULOSKELETAL PAIN [None]
  - SUBCUTANEOUS NODULE [None]
